FAERS Safety Report 11195870 (Version 7)
Quarter: 2016Q1

REPORT INFORMATION
  Report Type: Spontaneous
  Country: US (occurrence: US)
  Receive Date: 20150617
  Receipt Date: 20160325
  Transmission Date: 20160525
  Serious: Yes (Hospitalization, Other)
  Sender: FDA-Public Use
  Company Number: US-ASTRAZENECA-2015SE55016

PATIENT
  Age: 21438 Day
  Sex: Female
  Weight: 87.1 kg

DRUGS (5)
  1. OLAPARIB [Suspect]
     Active Substance: OLAPARIB
     Indication: OVARIAN CANCER
     Route: 048
  2. CATAPRES [Concomitant]
     Active Substance: CLONIDINE HYDROCHLORIDE
  3. CELEXA [Concomitant]
     Active Substance: CITALOPRAM HYDROBROMIDE
  4. ECOTRIN [Concomitant]
     Active Substance: ASPIRIN
  5. OLAPARIB [Suspect]
     Active Substance: OLAPARIB
     Indication: OVARIAN CANCER
     Route: 048

REACTIONS (15)
  - Colitis [Not Recovered/Not Resolved]
  - Compression fracture [Recovering/Resolving]
  - Peripheral swelling [Unknown]
  - Hypophagia [Unknown]
  - Haemoglobin decreased [Unknown]
  - Fatigue [Unknown]
  - Anaemia [Recovered/Resolved]
  - Oedema [Not Recovered/Not Resolved]
  - Dyspnoea [Unknown]
  - Nausea [Unknown]
  - Malignant neoplasm progression [Unknown]
  - Bone pain [Not Recovered/Not Resolved]
  - Spinal fracture [Unknown]
  - Dyspnoea [Not Recovered/Not Resolved]
  - Cardiac failure congestive [Recovering/Resolving]

NARRATIVE: CASE EVENT DATE: 20150704
